FAERS Safety Report 9865127 (Version 4)
Quarter: 2014Q2

REPORT INFORMATION
  Report Type: Spontaneous
  Country: US (occurrence: US)
  Receive Date: 20140203
  Receipt Date: 20140404
  Transmission Date: 20141212
  Serious: Yes (Death, Hospitalization, Other)
  Sender: FDA-Public Use
  Company Number: US-CELGENEUS-163-21880-13120947

PATIENT
  Age: 91 Year
  Sex: Male
  Weight: 69.46 kg

DRUGS (7)
  1. REVLIMID [Suspect]
     Indication: 5Q MINUS SYNDROME
     Dosage: 5 MILLIGRAM
     Route: 048
     Dates: start: 201310
  2. REVLIMID [Suspect]
     Dosage: 5 MILLIGRAM
     Route: 048
     Dates: start: 20131112
  3. SIMVASTATIN [Concomitant]
     Indication: HYPERLIPIDAEMIA
     Route: 048
  4. CLOPIDOGREL [Concomitant]
     Indication: HYPERLIPIDAEMIA
     Route: 048
  5. METOPROLOL [Concomitant]
     Indication: HYPERTENSION
     Route: 048
  6. PROCRIT [Concomitant]
     Indication: PRODUCT USED FOR UNKNOWN INDICATION
     Dosage: 60,000 UNITS
     Route: 065
  7. TOPROL [Concomitant]
     Indication: PRODUCT USED FOR UNKNOWN INDICATION
     Dosage: 25 MILLIGRAM
     Route: 048

REACTIONS (4)
  - Cardiac failure congestive [Fatal]
  - Anaemia of malignant disease [Recovered/Resolved]
  - Atrial fibrillation [Recovered/Resolved]
  - Coronary artery disease [Recovered/Resolved]
